FAERS Safety Report 24706185 (Version 1)
Quarter: 2024Q4

REPORT INFORMATION
  Report Type: Other
  Country: US (occurrence: US)
  Receive Date: 20241206
  Receipt Date: 20241206
  Transmission Date: 20250114
  Serious: Yes (Other)
  Sender: B BRAUN
  Company Number: US-B.Braun Medical Inc.-2166610

PATIENT
  Age: 72 Year
  Sex: Male

DRUGS (4)
  1. CEFEPIME HYDROCHLORIDE [Suspect]
     Active Substance: CEFEPIME HYDROCHLORIDE
     Indication: Sepsis
  2. METRONIDAZOLE [Suspect]
     Active Substance: METRONIDAZOLE
  3. DOXYCYCLINE [Suspect]
     Active Substance: DOXYCYCLINE
  4. VANCOMYCIN [Suspect]
     Active Substance: VANCOMYCIN

REACTIONS (2)
  - Distributive shock [Recovered/Resolved]
  - Jarisch-Herxheimer reaction [Recovered/Resolved]
